FAERS Safety Report 16139890 (Version 1)
Quarter: 2019Q1

REPORT INFORMATION
  Report Type: Spontaneous
  Country: US (occurrence: US)
  Receive Date: 20190331
  Receipt Date: 20190331
  Transmission Date: 20190418
  Serious: No
  Sender: FDA-Public Use
  Company Number: US-JNJFOC-20190315243

PATIENT
  Sex: Female
  Weight: 72.58 kg

DRUGS (2)
  1. ORTHO TRI CYCLEN LO [Suspect]
     Active Substance: ETHINYL ESTRADIOL\NORGESTIMATE
     Indication: PREMATURE MENOPAUSE
     Route: 048
     Dates: start: 201505, end: 201512
  2. ORTHO TRI CYCLEN LO [Suspect]
     Active Substance: ETHINYL ESTRADIOL\NORGESTIMATE
     Indication: POLYCYSTIC OVARIES
     Route: 048
     Dates: start: 201505, end: 201512

REACTIONS (2)
  - Off label use [Unknown]
  - Product use in unapproved indication [Unknown]
